FAERS Safety Report 4323311-7 (Version None)
Quarter: 2004Q1

REPORT INFORMATION
  Report Type: 
  Country: None (occurrence: None)
  Receive Date: 20040323
  Receipt Date: 20040323
  Transmission Date: 20041129
  Serious: Yes (Hospitalization)
  Sender: FDA-Public Use
  Company Number: None

PATIENT
  Age: 66 Year
  Sex: Male
  Weight: 88 kg

DRUGS (9)
  1. GEMFIBROZIL [Suspect]
  2. ALLOPURINOL [Concomitant]
  3. AMLODIPINE BESYLATE [Concomitant]
  4. CLOPIDOGREL BISULFATE [Concomitant]
  5. FUROSMIDE [Concomitant]
  6. METOPROLOL TARTRATE [Concomitant]
  7. RABEPRAZOLE NA [Concomitant]
  8. BUPROPION (WELLBUTRIN SR) [Concomitant]
  9. COLESTIPOL HCL [Concomitant]

REACTIONS (3)
  - ASTHENIA [None]
  - MYOPATHY [None]
  - RHABDOMYOLYSIS [None]
